FAERS Safety Report 12253327 (Version 1)
Quarter: 2016Q2

REPORT INFORMATION
  Report Type: Spontaneous
  Country: MX (occurrence: MX)
  Receive Date: 20160411
  Receipt Date: 20160411
  Transmission Date: 20160815
  Serious: Yes (Hospitalization, Other)
  Sender: FDA-Public Use
  Company Number: MX-009507513-1604MEX001770

PATIENT
  Age: 19 Year
  Sex: Male

DRUGS (1)
  1. SPRIAFIL [Suspect]
     Active Substance: POSACONAZOLE
     Indication: PROPHYLAXIS
     Dosage: 200 MG, TID
     Route: 048
     Dates: start: 20160301, end: 20160331

REACTIONS (4)
  - Drug ineffective [Unknown]
  - Product origin unknown [Unknown]
  - Allogenic bone marrow transplantation therapy [Unknown]
  - Aspergillus infection [Unknown]

NARRATIVE: CASE EVENT DATE: 201603
